FAERS Safety Report 12983213 (Version 1)
Quarter: 2016Q4

REPORT INFORMATION
  Report Type: Spontaneous
  Country: US (occurrence: US)
  Receive Date: 20161129
  Receipt Date: 20161129
  Transmission Date: 20170207
  Serious: No
  Sender: FDA-Public Use
  Company Number: None

PATIENT

DRUGS (2)
  1. ESTRADIOL ESTRADIOL [Suspect]
     Active Substance: ESTRADIOL
     Dosage: PACH TOPICA, 0.1MG/DAY TRANSDERMAL SYSTEM
     Route: 061
  2. ESTRADIOL ESTRADIOL [Suspect]
     Active Substance: ESTRADIOL

REACTIONS (2)
  - Drug dispensing error [None]
  - Product label issue [None]
